FAERS Safety Report 6075405-6 (Version None)
Quarter: 2009Q1

REPORT INFORMATION
  Report Type: 
  Country: None (occurrence: None)
  Receive Date: 20090210
  Receipt Date: 20090210
  Transmission Date: 20090719
  Serious: No
  Sender: FDA-Public Use
  Company Number: None

PATIENT
  Age: 60 Year
  Sex: Female
  Weight: 45.3597 kg

DRUGS (1)
  1. ACTONEL [Suspect]

REACTIONS (1)
  - INFLUENZA LIKE ILLNESS [None]
